FAERS Safety Report 13515451 (Version 1)
Quarter: 2017Q2

REPORT INFORMATION
  Report Type: Spontaneous
  Country: US (occurrence: US)
  Receive Date: 20170504
  Receipt Date: 20170504
  Transmission Date: 20170830
  Serious: Yes (Other)
  Sender: FDA-Public Use
  Company Number: US-HORIZON-PRE-0181-2017

PATIENT
  Age: 13 Day
  Sex: Male

DRUGS (3)
  1. AZATHIOPRINE. [Suspect]
     Active Substance: AZATHIOPRINE
  2. HYDROXYCHLOROQUINE [Suspect]
     Active Substance: HYDROXYCHLOROQUINE
  3. PREDNISONE. [Suspect]
     Active Substance: PREDNISONE

REACTIONS (3)
  - Laboratory test abnormal [Unknown]
  - T-lymphocyte count decreased [Recovered/Resolved]
  - Foetal exposure during pregnancy [Recovered/Resolved]
